FAERS Safety Report 5980457-5 (Version None)
Quarter: 2008Q4

REPORT INFORMATION
  Report Type: 
  Country: None (occurrence: None)
  Receive Date: 20081205
  Receipt Date: 20071213
  Transmission Date: 20090506
  Serious: No
  Sender: FDA-Public Use
  Company Number: A0698750A

PATIENT
  Age: 49 Year
  Sex: Female

DRUGS (1)
  1. COMMIT [Suspect]
     Dates: start: 20071201, end: 20071209

REACTIONS (2)
  - FEELING ABNORMAL [None]
  - PALPITATIONS [None]
